FAERS Safety Report 9432853 (Version 1)
Quarter: 2013Q3

REPORT INFORMATION
  Report Type: Spontaneous
  Country: US (occurrence: US)
  Receive Date: 20130731
  Receipt Date: 20130731
  Transmission Date: 20140515
  Serious: Yes (Disabling)
  Sender: FDA-Public Use
  Company Number: US-009507513-1307USA015068

PATIENT
  Sex: Male

DRUGS (1)
  1. PROPECIA [Suspect]
     Indication: ANDROGENETIC ALOPECIA
     Dosage: 1 MG, UNK
     Route: 048
     Dates: start: 2004, end: 2008

REACTIONS (7)
  - Anxiety [Unknown]
  - Erectile dysfunction [Unknown]
  - Libido decreased [Unknown]
  - Sexual dysfunction [Unknown]
  - Semen volume decreased [Unknown]
  - Testicular pain [Unknown]
  - Depression [Unknown]
